FAERS Safety Report 21680165 (Version 5)
Quarter: 2023Q1

REPORT INFORMATION
  Report Type: Report from Study
  Country: US (occurrence: US)
  Receive Date: 20221205
  Receipt Date: 20230123
  Transmission Date: 20230418
  Serious: Yes (Other)
  Sender: FDA-Public Use
  Company Number: US-ABBVIE-4223228

PATIENT
  Sex: Female

DRUGS (2)
  1. HUMIRA [Suspect]
     Active Substance: ADALIMUMAB
     Indication: Psoriasis
     Dosage: CITRATE FREE
     Route: 058
     Dates: start: 20210415
  2. HUMIRA [Suspect]
     Active Substance: ADALIMUMAB
     Dosage: CITRATE FREE
     Route: 058
     Dates: start: 20140506

REACTIONS (3)
  - Breast cancer female [Recovering/Resolving]
  - Bronchitis [Unknown]
  - Pain [Recovering/Resolving]
